FAERS Safety Report 15121619 (Version 8)
Quarter: 2019Q3

REPORT INFORMATION
  Report Type: Report from Study
  Country: IL (occurrence: IL)
  Receive Date: 20180709
  Receipt Date: 20190930
  Transmission Date: 20191004
  Serious: Yes (Hospitalization)
  Sender: FDA-Public Use
  Company Number: IL-IPSEN BIOPHARMACEUTICALS, INC.-2018-09719

PATIENT
  Age: 2 Year
  Sex: Female
  Weight: 11.3 kg

DRUGS (6)
  1. SOMATULINE PR 30MG [Suspect]
     Active Substance: LANREOTIDE ACETATE
     Indication: HYPERINSULINAEMIA
     Route: 065
     Dates: start: 20180515
  2. SOMATULINE PR 30MG [Suspect]
     Active Substance: LANREOTIDE ACETATE
     Route: 058
  3. PROGLYCEM [Concomitant]
     Active Substance: DIAZOXIDE
     Dosage: 29/M SUS. 30 MG. 1 X 3 PER DAY. ?LATER, DIAZOXIDE RESUMED AT 15 MG THREE TIMES A DAY, ADMINISTERED A
     Route: 048
     Dates: start: 20180206
  4. SOMATULINE PR 30MG [Suspect]
     Active Substance: LANREOTIDE ACETATE
     Route: 065
  5. HYDROCHLOROTHIAZIDE SYR [Concomitant]
     Dosage: 10 MG/1 ML. 1 X 2 PER DAY
     Route: 048
  6. SOMATULINE PR 30MG [Suspect]
     Active Substance: LANREOTIDE ACETATE
     Indication: OFF LABEL USE
     Route: 065
     Dates: start: 20180612

REACTIONS (5)
  - Off label use [Unknown]
  - Liver function test abnormal [Unknown]
  - Hypoglycaemia [Recovering/Resolving]
  - Seizure [Recovered/Resolved]
  - Product dose omission [Unknown]

NARRATIVE: CASE EVENT DATE: 20180515
